FAERS Safety Report 13901333 (Version 1)
Quarter: 2017Q3

REPORT INFORMATION
  Report Type: Spontaneous
  Country: AU (occurrence: AU)
  Receive Date: 20170824
  Receipt Date: 20170824
  Transmission Date: 20171127
  Serious: Yes (Hospitalization, Other)
  Sender: FDA-Public Use
  Company Number: AU-JNJFOC-20170815133

PATIENT
  Sex: Female

DRUGS (2)
  1. SPORANOX [Suspect]
     Active Substance: ITRACONAZOLE
     Indication: PRODUCT USED FOR UNKNOWN INDICATION
     Route: 065
  2. ALLERFEXO [Concomitant]
     Indication: HYPERSENSITIVITY
     Route: 065

REACTIONS (2)
  - Surgery [Unknown]
  - Mastectomy [Unknown]
